FAERS Safety Report 6982557-X (Version None)
Quarter: 2010Q3

REPORT INFORMATION
  Report Type: 
  Country: None (occurrence: None)
  Receive Date: 20100914
  Receipt Date: 20100224
  Transmission Date: 20110219
  Serious: No
  Sender: FDA-Public Use
  Company Number: US-PFIZER INC-2010025021

PATIENT
  Sex: Female
  Weight: 60.77 kg

DRUGS (7)
  1. LYRICA [Suspect]
     Indication: FIBROMYALGIA
     Dosage: 450 MG, 2X/DAY
     Route: 048
     Dates: start: 20080101
  2. TOPAMAX [Concomitant]
     Indication: MIGRAINE
     Dosage: 200 MG, 1X/DAY
     Route: 048
  3. CYMBALTA [Concomitant]
     Indication: PAIN PROPHYLAXIS
     Dosage: 120 MG, 2X/DAY
     Route: 048
  4. IMITREX [Concomitant]
     Indication: MIGRAINE
     Dosage: AS NEEDED
  5. ESOMEPRAZOLE MAGNESIUM [Concomitant]
     Indication: GASTROOESOPHAGEAL REFLUX DISEASE
     Dosage: 40 MG, 1X/DAY
     Route: 048
  6. AMBIEN [Concomitant]
     Dosage: 10 MG, 1X/DAY
     Route: 048
  7. MESALAMINE [Concomitant]
     Indication: COLITIS ULCERATIVE
     Dosage: 4000 MG IN FOUR DIVIDED DOSES PER DAY

REACTIONS (3)
  - FATIGUE [None]
  - HYPOAESTHESIA [None]
  - MYALGIA [None]
